FAERS Safety Report 9196068 (Version 1)
Quarter: 2013Q1

REPORT INFORMATION
  Report Type: Report from Study
  Country: CA (occurrence: CA)
  Receive Date: 20130328
  Receipt Date: 20130328
  Transmission Date: 20140127
  Serious: Yes (Other)
  Sender: FDA-Public Use
  Company Number: CA-JNJFOC-20130312024

PATIENT
  Age: 60 Year
  Sex: Male

DRUGS (9)
  1. REMICADE [Suspect]
     Indication: RHEUMATOID ARTHRITIS
     Route: 042
     Dates: start: 201109
  2. CALCIUM [Concomitant]
     Route: 065
  3. VIT D [Concomitant]
     Route: 065
  4. TRAZODONE [Concomitant]
     Route: 065
  5. ENALAPRIL [Concomitant]
     Route: 065
  6. DOCUSATE [Concomitant]
     Route: 065
  7. RABEPRAZOLE [Concomitant]
     Route: 065
  8. METOPROLOL [Concomitant]
     Route: 065
  9. METHOTREXATE [Concomitant]
     Route: 065

REACTIONS (1)
  - Angina pectoris [Recovered/Resolved]
